FAERS Safety Report 13777079 (Version 1)
Quarter: 2017Q3

REPORT INFORMATION
  Report Type: Spontaneous
  Country: DE (occurrence: DE)
  Receive Date: 20170721
  Receipt Date: 20170721
  Transmission Date: 20171127
  Serious: Yes (Other)
  Sender: FDA-Public Use
  Company Number: DE-SA-2015SA049309

PATIENT
  Sex: Female
  Weight: 69 kg

DRUGS (4)
  1. IRON [Concomitant]
     Active Substance: IRON
     Dosage: STARTED DURING PREGNANCY.
     Route: 048
  2. FOLIC ACID. [Concomitant]
     Active Substance: FOLIC ACID
     Route: 048
  3. CLEXANE [Suspect]
     Active Substance: ENOXAPARIN SODIUM
     Indication: DEEP VEIN THROMBOSIS
     Dosage: DOSE AND FREQUENCY: 2X80 MG/DAY AND 1X80 MG/DAY
     Route: 058
     Dates: start: 20150129, end: 20150527
  4. PARACETAMOL [Concomitant]
     Active Substance: ACETAMINOPHEN
     Dosage: STARTED DURING PREGNANCY
     Route: 048

REACTIONS (3)
  - Exposure during pregnancy [Unknown]
  - Polyhydramnios [Unknown]
  - Injection site induration [Not Recovered/Not Resolved]

NARRATIVE: CASE EVENT DATE: 2015
